FAERS Safety Report 22084541 (Version 1)
Quarter: 2023Q1

REPORT INFORMATION
  Report Type: Spontaneous
  Country: US (occurrence: US)
  Receive Date: 20230310
  Receipt Date: 20230310
  Transmission Date: 20230417
  Serious: Yes (Hospitalization, Other)
  Sender: FDA-Public Use
  Company Number: US-002147023-NVSC2023US051653

PATIENT
  Age: 70 Year
  Sex: Female

DRUGS (2)
  1. VIVELLE-DOT [Suspect]
     Active Substance: ESTRADIOL
     Indication: Osteoporosis
     Dosage: 0.075 MG, BIW
     Route: 062
  2. ESTROGENS [Suspect]
     Active Substance: ESTROGENS
     Indication: Osteoporosis
     Dosage: (10 YEARS AGO)
     Route: 062

REACTIONS (4)
  - Anaphylactic shock [Unknown]
  - Herpes zoster [Unknown]
  - Osteoporosis [Unknown]
  - Hair growth abnormal [Unknown]
